FAERS Safety Report 7372740-6 (Version None)
Quarter: 2011Q1

REPORT INFORMATION
  Report Type: 
  Country: None (occurrence: None)
  Receive Date: 20110311
  Receipt Date: 20110304
  Transmission Date: 20110831
  Serious: Yes (Hospitalization, Other)
  Sender: FDA-Public Use
  Company Number: 2010SP062391

PATIENT
  Age: 28 Year
  Sex: Female
  Weight: 58.9676 kg

DRUGS (5)
  1. NUVARING [Suspect]
     Indication: CONTRACEPTION
     Dates: start: 20080101
  2. NUVARING [Suspect]
     Indication: UTERINE LEIOMYOMA
     Dates: start: 20080101
  3. NUVARING [Suspect]
     Indication: CONTRACEPTION
     Dates: start: 20000101
  4. NUVARING [Suspect]
     Indication: UTERINE LEIOMYOMA
     Dates: start: 20000101
  5. ACETAMINOPHEN [Concomitant]

REACTIONS (6)
  - APHASIA [None]
  - COORDINATION ABNORMAL [None]
  - HYPOKINESIA [None]
  - OVARIAN CYST [None]
  - UTERINE LEIOMYOMA [None]
  - ROAD TRAFFIC ACCIDENT [None]
